FAERS Safety Report 11343690 (Version 1)
Quarter: 2015Q3

REPORT INFORMATION
  Report Type: Spontaneous
  Country: FR (occurrence: FR)
  Receive Date: 20150806
  Receipt Date: 20150806
  Transmission Date: 20151125
  Serious: Yes (Hospitalization)
  Sender: FDA-Public Use
  Company Number: FR-AUROBINDO-AUR-APL-2015-06619

PATIENT
  Age: 83 Year
  Sex: Male

DRUGS (6)
  1. CALCIPARINE [Suspect]
     Active Substance: HEPARIN CALCIUM
     Indication: PRODUCT USED FOR UNKNOWN INDICATION
     Dosage: 0.4 ML, 3 TIMES A DAY
     Route: 058
     Dates: start: 20150611, end: 20150627
  2. CALCIPARINE [Suspect]
     Active Substance: HEPARIN CALCIUM
     Dosage: UNK
     Route: 065
     Dates: start: 20150713
  3. PANTOPRAZOLE ARROW 20MG [Suspect]
     Active Substance: PANTOPRAZOLE SODIUM
     Indication: PRODUCT USED FOR UNKNOWN INDICATION
     Dosage: 20 MG, DAILY
     Route: 048
     Dates: start: 2013
  4. XATRAL [Suspect]
     Active Substance: ALFUZOSIN
     Indication: BENIGN PROSTATIC HYPERPLASIA
     Dosage: 10 MG, DAILY
     Route: 048
     Dates: start: 20150624, end: 20150702
  5. DEPAKINE                           /00228501/ [Concomitant]
     Active Substance: VALPROIC ACID
     Indication: PRODUCT USED FOR UNKNOWN INDICATION
     Dosage: 600 UNK, DAILY
     Route: 065
     Dates: start: 2012
  6. ATARAX [Suspect]
     Active Substance: HYDROXYZINE\HYDROXYZINE HYDROCHLORIDE
     Indication: PRODUCT USED FOR UNKNOWN INDICATION
     Dosage: 50 MG, DAILY
     Route: 048
     Dates: start: 20150624, end: 20150702

REACTIONS (9)
  - Plasma cell myeloma [Unknown]
  - Proteinuria [Unknown]
  - Cardiac failure [Unknown]
  - Band neutrophil count decreased [Recovered/Resolved]
  - Plasmacytosis [Unknown]
  - Thrombocytopenia [Recovered/Resolved]
  - Anaemia [Recovered/Resolved]
  - Heparin-induced thrombocytopenia [Unknown]
  - Inflammation [Unknown]

NARRATIVE: CASE EVENT DATE: 20150627
